FAERS Safety Report 11808258 (Version 1)
Quarter: 2015Q4

REPORT INFORMATION
  Report Type: Spontaneous
  Country: IT (occurrence: IT)
  Receive Date: 20151207
  Receipt Date: 20151207
  Transmission Date: 20160305
  Serious: Yes (Hospitalization)
  Sender: FDA-Public Use
  Company Number: IT-SA-2015SA201967

PATIENT
  Age: 77 Year
  Sex: Male

DRUGS (10)
  1. TARGOSID [Suspect]
     Active Substance: TEICOPLANIN
     Indication: SKIN ULCER
     Route: 030
     Dates: start: 20151027, end: 20151110
  2. ROCEFIN [Suspect]
     Active Substance: CEFTRIAXONE SODIUM
     Indication: SKIN ULCER
     Route: 030
     Dates: start: 20151015, end: 20151026
  3. ROCEFIN [Suspect]
     Active Substance: CEFTRIAXONE SODIUM
     Indication: SKIN ULCER
     Route: 030
     Dates: start: 20151015, end: 20151026
  4. MEDROL [Concomitant]
     Active Substance: METHYLPREDNISOLONE
     Indication: PSORIATIC ARTHROPATHY
     Route: 048
  5. CLEXANE [Suspect]
     Active Substance: ENOXAPARIN SODIUM
     Indication: THROMBOSIS PROPHYLAXIS
     Route: 058
     Dates: start: 20151111, end: 20151115
  6. MUSCORIL [Suspect]
     Active Substance: THIOCOLCHICOSIDE
     Indication: ARTHRALGIA
     Route: 048
     Dates: start: 20151111, end: 20151115
  7. LYRICA [Suspect]
     Active Substance: PREGABALIN
     Indication: ARTHRALGIA
     Route: 048
     Dates: start: 20151111, end: 20151115
  8. MUSCORIL [Suspect]
     Active Substance: THIOCOLCHICOSIDE
     Indication: ARTHRALGIA
     Route: 048
     Dates: start: 20151111, end: 20151115
  9. TARGOSID [Suspect]
     Active Substance: TEICOPLANIN
     Indication: SKIN ULCER
     Route: 030
     Dates: start: 20151027, end: 20151110
  10. LYRICA [Suspect]
     Active Substance: PREGABALIN
     Indication: ARTHRALGIA
     Route: 048
     Dates: start: 20151111, end: 20151115

REACTIONS (6)
  - Toxic epidermal necrolysis [Recovering/Resolving]
  - Burning sensation [Recovering/Resolving]
  - Pyrexia [Recovering/Resolving]
  - Leukocytosis [Recovering/Resolving]
  - Neutrophilia [Recovering/Resolving]
  - Rash [Recovering/Resolving]

NARRATIVE: CASE EVENT DATE: 20151115
